FAERS Safety Report 17241477 (Version 1)
Quarter: 2020Q1

REPORT INFORMATION
  Report Type: Spontaneous
  Country: CA (occurrence: CA)
  Receive Date: 20200107
  Receipt Date: 20200107
  Transmission Date: 20200409
  Serious: Yes (Hospitalization)
  Sender: FDA-Public Use
  Company Number: CA-MYLANLABS-2019M1133039

PATIENT
  Age: 37 Year
  Sex: Female

DRUGS (9)
  1. ASCORBIC ACID. [Suspect]
     Active Substance: ASCORBIC ACID
     Indication: ABDOMINAL DISCOMFORT
     Dosage: 3.75G-7.25G; RECEIVED 3 TREATMENTS
     Route: 042
     Dates: start: 201901
  2. ACETYLCYSTEINE. [Suspect]
     Active Substance: ACETYLCYSTEINE
     Indication: ABDOMINAL DISCOMFORT
     Dosage: 0.5G TO 2.75G; RECEIVED 3 TREATMENTS
     Route: 042
     Dates: start: 201901
  3. RIVAROXABAN [Suspect]
     Active Substance: RIVAROXABAN
     Indication: THROMBOSIS PROPHYLAXIS
     Dosage: 15 MILLIGRAM, QD
     Route: 048
     Dates: start: 2014, end: 201902
  4. COPPER [Suspect]
     Active Substance: COPPER
     Indication: ABDOMINAL DISCOMFORT
     Dosage: UNK
     Route: 048
     Dates: start: 201901
  5. BICARBONATE [Suspect]
     Active Substance: SODIUM BICARBONATE
     Indication: ABDOMINAL DISCOMFORT
     Dosage: RECEIVED 3 TREATMENTS
     Dates: start: 201901
  6. ASHWAGANDHA                        /01660201/ [Suspect]
     Active Substance: HERBALS
     Indication: ABDOMINAL DISCOMFORT
     Dosage: 600 MILLIGRAM
     Route: 048
     Dates: start: 201901
  7. L-CARNITINE                        /00878601/ [Suspect]
     Active Substance: LEVOCARNITINE
     Indication: ABDOMINAL DISCOMFORT
     Dosage: 1.25G-3.75G; RECEIVED 3 TREATMENTS
     Route: 042
     Dates: start: 201901
  8. B-COMPLEX                          /00003501/ [Suspect]
     Active Substance: CYANOCOBALAMIN\DEXPANTHENOL\NIACINAMIDE\PYRIDOXINE HYDROCHLORIDE\RIBOFLAVIN 5^-PHOSPHATE SODIUM\THIAMINE HYDROCHLORIDE\VITAMIN B COMPLEX
     Indication: ABDOMINAL DISCOMFORT
     Dosage: 0.50ML TO 1.00ML; RECEIVED 3 TREATMENTS
     Route: 042
     Dates: start: 201901
  9. THIOCTIC ACID [Suspect]
     Active Substance: .ALPHA.-LIPOIC ACID
     Indication: ABDOMINAL DISCOMFORT
     Dosage: UNK
     Route: 065
     Dates: start: 2019, end: 2019

REACTIONS (5)
  - Hepatitis acute [Recovering/Resolving]
  - Portal hypertension [Recovering/Resolving]
  - Hepatic fibrosis [Not Recovered/Not Resolved]
  - Drug-induced liver injury [Recovering/Resolving]
  - Splenomegaly [Recovering/Resolving]

NARRATIVE: CASE EVENT DATE: 2019
